FAERS Safety Report 5403296-2 (Version None)
Quarter: 2007Q3

REPORT INFORMATION
  Report Type: 
  Country: None (occurrence: None)
  Receive Date: 20070801
  Receipt Date: 20070720
  Transmission Date: 20080115
  Serious: Yes (Other)
  Sender: FDA-Public Use
  Company Number: US-PFIZER INC-2007061778

PATIENT
  Sex: Male
  Weight: 99.1 kg

DRUGS (12)
  1. LIPITOR [Suspect]
     Indication: BLOOD CHOLESTEROL INCREASED
  2. ENDOCET [Concomitant]
  3. TAMSULOSIN HCL [Concomitant]
  4. OXYCODONE HCL [Concomitant]
  5. BUPROPION HCL [Concomitant]
  6. DICLOFENAC SODIUM [Concomitant]
  7. HYDROCHLOROTHIAZIDE [Concomitant]
  8. VALSARTAN [Concomitant]
  9. LUNESTA [Concomitant]
     Indication: SLEEP DISORDER
  10. BENAZEPRIL HYDROCHLORIDE [Concomitant]
  11. CLORAZEPATE [Concomitant]
  12. GLIMEPIRIDE [Concomitant]

REACTIONS (2)
  - ABASIA [None]
  - MYALGIA [None]
